FAERS Safety Report 16036481 (Version 1)
Quarter: 2019Q1

REPORT INFORMATION
  Report Type: Spontaneous
  Country: US (occurrence: US)
  Receive Date: 20190305
  Receipt Date: 20190305
  Transmission Date: 20190418
  Serious: No
  Sender: FDA-Public Use
  Company Number: US-ALLERGAN-1903753US

PATIENT
  Sex: Female

DRUGS (7)
  1. ESTRACE [Suspect]
     Active Substance: ESTRADIOL
     Indication: INFLAMMATION
     Dosage: 1 MG, UNK
     Route: 067
     Dates: start: 20190121, end: 20190123
  2. ASPIRIN. [Concomitant]
     Active Substance: ASPIRIN
     Indication: PRODUCT USED FOR UNKNOWN INDICATION
     Dosage: 81 MG, UNK
     Route: 065
  3. LOSARTAN. [Concomitant]
     Active Substance: LOSARTAN
     Indication: HYPERTENSION
     Dosage: 25 MG, UNK
     Route: 065
  4. GLIMEPIRIDE. [Concomitant]
     Active Substance: GLIMEPIRIDE
     Indication: DIABETES MELLITUS
     Dosage: 2.5 MG, UNK
     Route: 065
  5. ANTIBIOTICS -1 ROUND [Concomitant]
  6. UNKNOWN NAMED MEDICATION [Concomitant]
  7. ANTIBIOTICS-2 ROUND [Concomitant]

REACTIONS (2)
  - Off label use [Unknown]
  - Vulvovaginal burning sensation [Not Recovered/Not Resolved]

NARRATIVE: CASE EVENT DATE: 20190121
